FAERS Safety Report 16043015 (Version 1)
Quarter: 2019Q1

REPORT INFORMATION
  Report Type: Spontaneous
  Country: JP (occurrence: JP)
  Receive Date: 20190306
  Receipt Date: 20190306
  Transmission Date: 20190418
  Serious: Yes (Other)
  Sender: FDA-Public Use
  Company Number: JP-JNJFOC-20180316192

PATIENT
  Age: 5 Decade
  Sex: Female

DRUGS (6)
  1. CANAGLU [Suspect]
     Active Substance: CANAGLIFLOZIN
     Indication: TYPE 2 DIABETES MELLITUS
     Route: 048
     Dates: start: 20160915
  2. JANUVIA [Concomitant]
     Active Substance: SITAGLIPTIN PHOSPHATE
     Indication: TYPE 2 DIABETES MELLITUS
     Dosage: BEFORE 2009
     Route: 048
  3. EBRANTIL [Suspect]
     Active Substance: URAPIDIL
     Indication: ADVERSE EVENT
     Route: 048
     Dates: end: 20180416
  4. METGLUCO [Concomitant]
     Active Substance: METFORMIN HYDROCHLORIDE
     Indication: TYPE 2 DIABETES MELLITUS
     Route: 048
     Dates: start: 20110630
  5. BETANIS [Suspect]
     Active Substance: MIRABEGRON
     Indication: ADVERSE EVENT
     Route: 048
     Dates: end: 20180416
  6. VOGLIBOSE [Concomitant]
     Active Substance: VOGLIBOSE
     Indication: TYPE 2 DIABETES MELLITUS
     Dosage: BEFORE 2009
     Route: 048

REACTIONS (5)
  - Intervertebral disc protrusion [Not Recovered/Not Resolved]
  - Diarrhoea [Recovering/Resolving]
  - Neurogenic bladder [Recovering/Resolving]
  - Pain in extremity [Recovering/Resolving]
  - Urinary incontinence [Recovering/Resolving]

NARRATIVE: CASE EVENT DATE: 201708
